FAERS Safety Report 8216696-2 (Version None)
Quarter: 2012Q1

REPORT INFORMATION
  Report Type: 
  Country: None (occurrence: None)
  Receive Date: 20120316
  Receipt Date: 20120313
  Transmission Date: 20120608
  Serious: Yes (Hospitalization)
  Sender: FDA-Public Use
  Company Number: US-AMGEN-USASP2012016566

PATIENT
  Age: 70 Year
  Sex: Male

DRUGS (3)
  1. XGEVA [Suspect]
     Indication: PROPHYLAXIS
     Dates: start: 20120220
  2. CALCIUM CARBONATE [Concomitant]
     Indication: PROPHYLAXIS
     Dosage: 1500 MG, QD
     Route: 048
  3. LUPRON [Concomitant]
     Indication: PROSTATE CANCER METASTATIC

REACTIONS (3)
  - BUNDLE BRANCH BLOCK [None]
  - HYPOAESTHESIA [None]
  - HYPOCALCAEMIA [None]
